FAERS Safety Report 4718859-7 (Version None)
Quarter: 2005Q3

REPORT INFORMATION
  Report Type: 
  Country: None (occurrence: None)
  Receive Date: 20050719
  Receipt Date: 20050425
  Transmission Date: 20060218
  Serious: Yes (Other)
  Sender: FDA-Public Use
  Company Number: PAR_0011_2005

PATIENT
  Age: 66 Year
  Sex: Female

DRUGS (1)
  1. ISOPTIN SR [Suspect]
     Indication: HYPERTENSION
     Dosage: 240 MG QDAY PO
     Route: 048

REACTIONS (1)
  - HEART RATE DECREASED [None]
